FAERS Safety Report 10534471 (Version 1)
Quarter: 2014Q4

REPORT INFORMATION
  Report Type: Spontaneous
  Country: US (occurrence: None)
  Receive Date: 20141021
  Receipt Date: 20141021
  Transmission Date: 20150529
  Serious: Yes (Hospitalization)
  Sender: FDA-Public Use
  Company Number: None

PATIENT
  Age: 28 Year
  Sex: Female
  Weight: 84.82 kg

DRUGS (2)
  1. PRENATAL VITAMIN [Concomitant]
     Active Substance: VITAMINS
  2. NICOTROL [Suspect]
     Active Substance: NICOTINE
     Indication: SMOKING CESSATION THERAPY
     Dosage: 4-12 CARTRIDGES/DAY?
     Dates: start: 20140623, end: 20140624

REACTIONS (18)
  - Maternal drugs affecting foetus [None]
  - Maternal exposure during pregnancy [None]
  - Vaginal discharge [None]
  - Abdominal pain [None]
  - Tachycardia [None]
  - Tachypnoea [None]
  - Apgar score low [None]
  - Amniotic cavity infection [None]
  - Caesarean section [None]
  - Low birth weight baby [None]
  - Endotracheal intubation complication [None]
  - Chest pain [None]
  - Dyspnoea [None]
  - Anxiety [None]
  - Endometritis [None]
  - Streptococcus test positive [None]
  - Foetal exposure during pregnancy [None]
  - Premature baby [None]

NARRATIVE: CASE EVENT DATE: 20140721
